FAERS Safety Report 6588946-X (Version None)
Quarter: 2010Q1

REPORT INFORMATION
  Report Type: 
  Country: None (occurrence: None)
  Receive Date: 20100218
  Receipt Date: 20100208
  Transmission Date: 20100710
  Serious: Yes (Other)
  Sender: FDA-Public Use
  Company Number: US-PFIZER INC-2009312142

PATIENT
  Sex: Female
  Weight: 76.203 kg

DRUGS (1)
  1. DILANTIN-125 [Suspect]
     Dosage: 100 MG, 3X/DAY
     Dates: start: 20091021, end: 20091021

REACTIONS (4)
  - DRUG HYPERSENSITIVITY [None]
  - DYSPNOEA [None]
  - RASH [None]
  - URTICARIA [None]
